FAERS Safety Report 6537150-X (Version None)
Quarter: 2010Q1

REPORT INFORMATION
  Report Type: 
  Country: None (occurrence: None)
  Receive Date: 20100114
  Receipt Date: 20100106
  Transmission Date: 20100710
  Serious: Yes (Hospitalization)
  Sender: FDA-Public Use
  Company Number: US-ELI_LILLY_AND_COMPANY-US201001000004

PATIENT
  Sex: Female
  Weight: 80.317 kg

DRUGS (10)
  1. PEMETREXED [Suspect]
     Indication: NON-SMALL CELL LUNG CANCER STAGE IV
     Dosage: 500 MG/M2, OTHER
     Route: 042
     Dates: start: 20091006
  2. CARBOPLATIN [Suspect]
     Indication: NON-SMALL CELL LUNG CANCER STAGE IV
     Dosage: 6 D/F, OTHER
     Route: 042
     Dates: start: 20091006
  3. BEVACIZUMAB [Suspect]
     Indication: NON-SMALL CELL LUNG CANCER STAGE IV
     Dosage: 15 MG/KG, OTHER
     Route: 042
     Dates: start: 20091006
  4. KEPPRA [Concomitant]
     Indication: CONVULSION
     Dates: start: 20090910
  5. XANAX [Concomitant]
     Indication: ANXIETY
     Dates: start: 20090910
  6. CARDIZEM [Concomitant]
     Indication: HYPERTENSION
     Dates: start: 20090910
  7. PROTONIX [Concomitant]
     Indication: GASTROOESOPHAGEAL REFLUX DISEASE
     Dates: start: 20090910
  8. COLACE [Concomitant]
     Indication: CONSTIPATION
     Dates: start: 20090910
  9. ZOCOR [Concomitant]
     Indication: BLOOD CHOLESTEROL INCREASED
     Dates: start: 20090910
  10. ZOFRAN [Concomitant]
     Indication: NAUSEA
     Dates: start: 20090910

REACTIONS (2)
  - RECTAL HAEMORRHAGE [None]
  - THROMBOCYTOPENIA [None]
